FAERS Safety Report 7996861-X (Version None)
Quarter: 2011Q4

REPORT INFORMATION
  Report Type: 
  Country: None (occurrence: None)
  Receive Date: 20111221
  Receipt Date: 20111213
  Transmission Date: 20120403
  Serious: Yes (Other)
  Sender: FDA-Public Use
  Company Number: FR-JNJFOC-20110910193

PATIENT
  Sex: Male
  Weight: 80 kg

DRUGS (6)
  1. RISPERDAL CONSTA [Suspect]
     Indication: PSYCHOTIC DISORDER
     Route: 030
  2. DEPAKENE [Concomitant]
     Indication: EPILEPSY
     Route: 065
     Dates: start: 20090701
  3. TERCIAN [Concomitant]
     Indication: PSYCHOTIC DISORDER
     Route: 065
     Dates: start: 20090101
  4. TRANXENE [Concomitant]
     Indication: PSYCHOTIC DISORDER
     Route: 065
     Dates: start: 20091101
  5. LEPTICUR [Concomitant]
     Indication: DYSKINESIA
     Route: 065
  6. MULTIPLE OTHER MEDICATIONS [Concomitant]
     Indication: PRODUCT USED FOR UNKNOWN INDICATION
     Route: 065

REACTIONS (2)
  - LEUKOCYTOSIS [None]
  - HYPERTHERMIA [None]
